FAERS Safety Report 5214311-3 (Version None)
Quarter: 2007Q1

REPORT INFORMATION
  Report Type: 
  Country: None (occurrence: None)
  Receive Date: 20070122
  Receipt Date: 20070108
  Transmission Date: 20070707
  Serious: Yes (Hospitalization)
  Sender: FDA-Public Use
  Company Number: US-MERCK-0512USA00895

PATIENT
  Age: 81 Year
  Sex: Male
  Weight: 102 kg

DRUGS (3)
  1. PROSCAR [Suspect]
     Indication: BENIGN PROSTATIC HYPERPLASIA
     Route: 048
     Dates: start: 19990707, end: 20040713
  2. PROSCAR [Suspect]
     Indication: HAEMATURIA
     Route: 048
     Dates: start: 19990707, end: 20040713
  3. SAW PALMETTO [Concomitant]
     Route: 065

REACTIONS (3)
  - BREAST TENDERNESS [None]
  - GYNAECOMASTIA [None]
  - PELVIC FRACTURE [None]
